FAERS Safety Report 11070183 (Version 1)
Quarter: 2015Q2

REPORT INFORMATION
  Report Type: Spontaneous
  Country: US (occurrence: US)
  Receive Date: 20150427
  Receipt Date: 20150427
  Transmission Date: 20150821
  Serious: Yes (Other)
  Sender: FDA-Public Use
  Company Number: US-PFIZER INC-2015138893

PATIENT
  Sex: Male

DRUGS (1)
  1. LYRICA [Suspect]
     Active Substance: PREGABALIN
     Dosage: 50 MG, EVERY 8 HOURS
     Dates: start: 20150121

REACTIONS (6)
  - Multiple sclerosis [Unknown]
  - Condition aggravated [Unknown]
  - Irritable bowel syndrome [Unknown]
  - Memory impairment [Unknown]
  - Diarrhoea [Unknown]
  - Gait disturbance [Unknown]
